FAERS Safety Report 24713173 (Version 2)
Quarter: 2024Q4

REPORT INFORMATION
  Report Type: Spontaneous
  Country: ES (occurrence: ES)
  Receive Date: 20241209
  Receipt Date: 20241211
  Transmission Date: 20250115
  Serious: Yes (Life-Threatening, Hospitalization, Other)
  Sender: MERCK
  Company Number: None

PATIENT
  Age: 83 Year
  Sex: Male

DRUGS (1)
  1. KEYTRUDA [Suspect]
     Active Substance: PEMBROLIZUMAB
     Dosage: KEYTRUDA 25 MG/ML CONCENTRATE FOR SOLUTION FOR INFUSION, 1 VIAL OF 4 ML
     Route: 042
     Dates: start: 20240610, end: 20240610

REACTIONS (3)
  - Myocarditis [Recovered/Resolved]
  - Pneumonitis [Recovered/Resolved]
  - Immune-mediated hepatitis [Recovered/Resolved]

NARRATIVE: CASE EVENT DATE: 20240716
